FAERS Safety Report 8621895-1 (Version None)
Quarter: 2012Q3

REPORT INFORMATION
  Report Type: 
  Country: None (occurrence: None)
  Receive Date: 20120822
  Receipt Date: 20120822
  Transmission Date: 20120928
  Serious: No
  Sender: FDA-Public Use
  Company Number: None

PATIENT
  Sex: Male
  Weight: 114 kg

DRUGS (1)
  1. INTERFERON 2B (INRON-A) [Suspect]
     Dosage: 768 MU

REACTIONS (1)
  - ASTHENIA [None]
